FAERS Safety Report 20517430 (Version 2)
Quarter: 2022Q2

REPORT INFORMATION
  Report Type: Spontaneous
  Country: JP (occurrence: JP)
  Receive Date: 20220225
  Receipt Date: 20220515
  Transmission Date: 20220720
  Serious: Yes (Death, Other)
  Sender: FDA-Public Use
  Company Number: JP-TAKEDA-2022TJP022045

PATIENT
  Age: 51 Year
  Sex: Male
  Weight: 81 kg

DRUGS (7)
  1. ALUNBRIG [Suspect]
     Active Substance: BRIGATINIB
     Indication: Non-small cell lung cancer
     Dosage: 90 MILLIGRAM, QD
     Route: 048
     Dates: start: 20210512, end: 20210518
  2. ALUNBRIG [Suspect]
     Active Substance: BRIGATINIB
     Dosage: 180 MILLIGRAM, QD
     Route: 048
     Dates: start: 20210519, end: 20210610
  3. AMLODIPINE [Concomitant]
     Active Substance: AMLODIPINE BESYLATE
     Indication: Hypertension
     Dosage: 10 MILLIGRAM, QD
     Route: 048
     Dates: start: 20140709, end: 20210630
  4. OLMESARTAN MEDOXOMIL [Concomitant]
     Active Substance: OLMESARTAN MEDOXOMIL
     Indication: Hypertension
     Dosage: 20 MILLIGRAM, QD
     Route: 048
     Dates: start: 20140709, end: 20210630
  5. ROSUVASTATIN CALCIUM [Concomitant]
     Active Substance: ROSUVASTATIN CALCIUM
     Indication: Lipids abnormal
     Dosage: 10 MILLIGRAM, QD
     Route: 048
     Dates: start: 20140709, end: 20210630
  6. LANSOPRAZOLE [Concomitant]
     Active Substance: LANSOPRAZOLE
     Indication: Gastritis
     Dosage: 15 MILLIGRAM, QD
     Route: 048
     Dates: start: 20140709, end: 20210630
  7. TRAMADOL HYDROCHLORIDE [Concomitant]
     Active Substance: TRAMADOL HYDROCHLORIDE
     Indication: Cancer pain
     Dosage: 100 MILLIGRAM, QD
     Route: 048
     Dates: start: 20210518, end: 20210530

REACTIONS (8)
  - Ascites [Fatal]
  - Non-small cell lung cancer [Fatal]
  - Adrenomegaly [Unknown]
  - Abdominal lymphadenopathy [Unknown]
  - Lymphadenopathy [Unknown]
  - Pleural effusion [Unknown]
  - Acquired hydrocele [Unknown]
  - Malaise [Unknown]

NARRATIVE: CASE EVENT DATE: 20210610
